FAERS Safety Report 19514485 (Version 2)
Quarter: 2021Q3

REPORT INFORMATION
  Report Type: Report from Study
  Country: None (occurrence: IN)
  Receive Date: 20210710
  Receipt Date: 20210716
  Transmission Date: 20211014
  Serious: Yes (Death)
  Sender: FDA-Public Use
  Company Number: IN-ABBVIE-21P-078-3984601-00

PATIENT
  Age: 52 Year
  Sex: Male

DRUGS (1)
  1. CREON [Suspect]
     Active Substance: PANCRELIPASE AMYLASE\PANCRELIPASE LIPASE\PANCRELIPASE PROTEASE
     Indication: PANCREATITIS
     Dosage: 2500, 2 TIMES /DAY DURATION: 10 YEARS 7 MONTHS
     Route: 048
     Dates: start: 201009, end: 20210702

REACTIONS (2)
  - Pancreatolithiasis [Fatal]
  - Renal failure [Fatal]

NARRATIVE: CASE EVENT DATE: 20210601
